FAERS Safety Report 8519026-1 (Version None)
Quarter: 2012Q3

REPORT INFORMATION
  Report Type: 
  Country: None (occurrence: None)
  Receive Date: 20120718
  Receipt Date: 20120712
  Transmission Date: 20120928
  Serious: Yes (Hospitalization, Other)
  Sender: FDA-Public Use
  Company Number: PHHY2012ES059981

PATIENT
  Age: 18 Year
  Sex: Male

DRUGS (1)
  1. FLECAINIDE ACETATE [Suspect]
     Dosage: 1800 MG, ONCE/SINGLE

REACTIONS (5)
  - BUNDLE BRANCH BLOCK RIGHT [None]
  - SUICIDE ATTEMPT [None]
  - HYPOTENSION [None]
  - SOMNOLENCE [None]
  - OVERDOSE [None]
